FAERS Safety Report 16243326 (Version 1)
Quarter: 2019Q2

REPORT INFORMATION
  Report Type: Spontaneous
  Country: US (occurrence: US)
  Receive Date: 20190425
  Receipt Date: 20190425
  Transmission Date: 20190711
  Serious: Yes (Other)
  Sender: FDA-Public Use
  Company Number: None

PATIENT
  Age: 74 Year
  Sex: Male
  Weight: 82.8 kg

DRUGS (7)
  1. BI-PAP [Concomitant]
     Active Substance: DEVICE
  2. LASIX [Concomitant]
     Active Substance: FUROSEMIDE
  3. CARDIZEM [Suspect]
     Active Substance: DILTIAZEM HYDROCHLORIDE
     Indication: HEART RATE INCREASED
     Dosage: ?          QUANTITY:30 CAPSULE(S);?
     Route: 048
     Dates: start: 20190417, end: 20190421
  4. PANTOPROZOL [Concomitant]
  5. JUICE PLUS [Concomitant]
     Active Substance: DIETARY SUPPLEMENT
  6. COQ10 [Concomitant]
     Active Substance: UBIDECARENONE
  7. XARELTO [Concomitant]
     Active Substance: RIVAROXABAN

REACTIONS (5)
  - Hot flush [None]
  - Syncope [None]
  - Depression [None]
  - Crying [None]
  - Flushing [None]

NARRATIVE: CASE EVENT DATE: 20190421
